FAERS Safety Report 7547383-1 (Version None)
Quarter: 2011Q2

REPORT INFORMATION
  Report Type: 
  Country: None (occurrence: None)
  Receive Date: 20110614
  Receipt Date: 20110609
  Transmission Date: 20111010
  Serious: Yes (Hospitalization)
  Sender: FDA-Public Use
  Company Number: DE-ABBOTT-11P-062-0731428-00

PATIENT
  Sex: Female
  Weight: 93 kg

DRUGS (2)
  1. IBUPROFEN [Concomitant]
     Indication: PRODUCT USED FOR UNKNOWN INDICATION
     Dosage: ONCE PER DAY
     Dates: start: 20110401
  2. HUMIRA [Suspect]
     Indication: ANKYLOSING SPONDYLITIS
     Route: 058
     Dates: start: 20100308, end: 20110401

REACTIONS (2)
  - ERYTHEMA [None]
  - ALOPECIA [None]
